FAERS Safety Report 21098882 (Version 2)
Quarter: 2022Q3

REPORT INFORMATION
  Report Type: Report from Study
  Country: ID (occurrence: None)
  Receive Date: 20220719
  Receipt Date: 20220726
  Transmission Date: 20221026
  Serious: Yes (Death)
  Sender: FDA-Public Use
  Company Number: 2022A258369

PATIENT
  Age: 27720 Day
  Sex: Female

DRUGS (1)
  1. FASLODEX [Suspect]
     Active Substance: FULVESTRANT
     Indication: Breast cancer metastatic
     Route: 030
     Dates: start: 20220512

REACTIONS (1)
  - Death [Fatal]

NARRATIVE: CASE EVENT DATE: 20220710
